FAERS Safety Report 10445297 (Version 6)
Quarter: 2015Q2

REPORT INFORMATION
  Report Type: Spontaneous
  Country: IE (occurrence: IE)
  Receive Date: 20140910
  Receipt Date: 20150507
  Transmission Date: 20150821
  Serious: Yes (Other)
  Sender: FDA-Public Use
  Company Number: PHFR2014IE005801

PATIENT
  Age: 62 Year
  Sex: Male

DRUGS (3)
  1. SEROQUEL [Concomitant]
     Active Substance: QUETIAPINE FUMARATE
     Indication: SCHIZOPHRENIA
     Dosage: 600 MG
     Route: 048
     Dates: end: 20140821
  2. PALIPERIDONE [Concomitant]
     Active Substance: PALIPERIDONE
     Indication: SCHIZOPHRENIA
     Dosage: 100 MG
     Route: 030
     Dates: start: 20140321, end: 20140821
  3. CLOZARIL [Suspect]
     Active Substance: CLOZAPINE
     Indication: SCHIZOPHRENIA
     Dosage: UKN
     Route: 048
     Dates: start: 20140729

REACTIONS (2)
  - Eosinophil count increased [Recovered/Resolved]
  - Differential white blood cell count abnormal [Unknown]

NARRATIVE: CASE EVENT DATE: 20140812
